FAERS Safety Report 15000244 (Version 1)
Quarter: 2018Q2

REPORT INFORMATION
  Report Type: Other
  Country: NO (occurrence: NO)
  Receive Date: 20180612
  Receipt Date: 20180612
  Transmission Date: 20180711
  Serious: Yes (Hospitalization)
  Sender: FDA-Public Use
  Company Number: NO-CELLTRION INC.-2018NO020303

PATIENT

DRUGS (4)
  1. METEX                              /00113802/ [Concomitant]
     Active Substance: METHOTREXATE SODIUM
     Indication: RHEUMATOID ARTHRITIS
     Dosage: 25 MG,  EVERY 1 WEEK
     Route: 058
  2. PREDNISOLONE. [Concomitant]
     Active Substance: PREDNISOLONE
     Indication: RHEUMATOID ARTHRITIS
  3. REMSIMA [Suspect]
     Active Substance: INFLIXIMAB
     Indication: RHEUMATOID ARTHRITIS
     Dosage: 3 MG/KG EVERY 6 WEEK
     Route: 042
     Dates: start: 2017, end: 2017
  4. REMSIMA [Suspect]
     Active Substance: INFLIXIMAB
     Dosage: 3 MG/KG EVERY 6 WEEK
     Route: 042
     Dates: start: 20180426, end: 20180426

REACTIONS (3)
  - Pruritus [Recovered/Resolved]
  - Oral discomfort [Recovered/Resolved]
  - Urticaria [Recovered/Resolved]

NARRATIVE: CASE EVENT DATE: 20180426
